FAERS Safety Report 5780274-5 (Version None)
Quarter: 2008Q2

REPORT INFORMATION
  Report Type: 
  Country: None (occurrence: None)
  Receive Date: 20080620
  Receipt Date: 20080620
  Transmission Date: 20081010
  Serious: Yes (Hospitalization)
  Sender: FDA-Public Use
  Company Number: PHHO2006AU09617

PATIENT
  Sex: Male
  Weight: 93 kg

DRUGS (4)
  1. RISEDRONATE SODIUM [Suspect]
     Indication: OSTEITIS DEFORMANS
     Dosage: 30MG
  2. CARDIZEM [Concomitant]
  3. PRAVACHOL [Concomitant]
  4. DIAMICRON [Concomitant]

REACTIONS (5)
  - ACUTE MYOCARDIAL INFARCTION [None]
  - CARDIAC FAILURE CONGESTIVE [None]
  - CHEST PAIN [None]
  - DYSPNOEA [None]
  - PARAESTHESIA [None]
